FAERS Safety Report 11687187 (Version 2)
Quarter: 2015Q4

REPORT INFORMATION
  Report Type: Report from Study
  Country: CA (occurrence: CA)
  Receive Date: 20151030
  Receipt Date: 20151117
  Transmission Date: 20160304
  Serious: Yes (Hospitalization, Other)
  Sender: FDA-Public Use
  Company Number: CA-AMGEN-CANSL2015112835

PATIENT
  Age: 75 Year
  Sex: Female

DRUGS (6)
  1. NORVASC [Concomitant]
     Active Substance: AMLODIPINE BESYLATE
  2. MANO                               /00042702/ [Concomitant]
  3. ADVAIR HFA [Concomitant]
     Active Substance: FLUTICASONE PROPIONATE\SALMETEROL XINAFOATE
  4. KEPPRA [Concomitant]
     Active Substance: LEVETIRACETAM
     Dosage: 750 MG, BID
  5. PROLIA [Suspect]
     Active Substance: DENOSUMAB
     Indication: OSTEOPOROSIS POSTMENOPAUSAL
     Dosage: 60 MG, Q6MO
     Route: 065
     Dates: start: 20120426
  6. CALCIUM [Concomitant]
     Active Substance: CALCIUM

REACTIONS (28)
  - Aortic aneurysm [Unknown]
  - Neuralgia [Unknown]
  - Atrial fibrillation [Unknown]
  - Epilepsy [Unknown]
  - Aortic intramural haematoma [Unknown]
  - Hypotension [Unknown]
  - Pleural effusion [Recovering/Resolving]
  - Anaemia [Unknown]
  - Arthralgia [Not Recovered/Not Resolved]
  - Cerebrovascular accident [Unknown]
  - Seizure [Unknown]
  - Malaise [Unknown]
  - Back pain [Not Recovered/Not Resolved]
  - Pain [Not Recovered/Not Resolved]
  - Occipital neuralgia [Unknown]
  - Glycosylated haemoglobin increased [Unknown]
  - Aortic disorder [Unknown]
  - Delirium [Unknown]
  - Microembolism [Unknown]
  - Thrombosis [Unknown]
  - Urinary tract infection [Unknown]
  - Hypertensive crisis [Unknown]
  - Aortic dissection [Unknown]
  - Syncope [Unknown]
  - Confusional state [Unknown]
  - Muscular weakness [Not Recovered/Not Resolved]
  - Cardiac disorder [Recovered/Resolved]
  - Haemodynamic instability [Unknown]

NARRATIVE: CASE EVENT DATE: 20150914
